FAERS Safety Report 15067454 (Version 1)
Quarter: 2018Q2

REPORT INFORMATION
  Report Type: Spontaneous
  Country: DE (occurrence: DE)
  Receive Date: 20180626
  Receipt Date: 20180626
  Transmission Date: 20180711
  Serious: Yes (Hospitalization)
  Sender: FDA-Public Use
  Company Number: DE-PFIZER INC-2018253527

PATIENT
  Age: 20 Year
  Sex: Male
  Weight: 103.8 kg

DRUGS (13)
  1. CYTARABIN [Suspect]
     Active Substance: CYTARABINE
     Dosage: 4000 MG/M2, CYCLIC
     Route: 042
  2. RITUXIMAB. [Suspect]
     Active Substance: RITUXIMAB
     Dosage: 375 MG, CYCLIC
     Route: 042
  3. CAPHOSOL [Concomitant]
     Active Substance: CALCIUM CHLORIDE\SODIUM CHLORIDE\SODIUM PHOSPHATE, DIBASIC, ANHYDROUS\SODIUM PHOSPHATE, MONOBASIC, ANHYDROUS
     Dosage: 7.8|4.8|1.35 MG, 1-1-1-1
     Route: 061
  4. COTRIM FORTE [Concomitant]
     Active Substance: SULFAMETHOXAZOLE\TRIMETHOPRIM
     Dosage: 800|160 MG, CYCLIC
     Route: 048
  5. PANTOPRAZOL [Concomitant]
     Active Substance: PANTOPRAZOLE SODIUM
     Dosage: 40 MG, 1X/DAY
     Route: 048
  6. VINDESINE [Suspect]
     Active Substance: VINDESINE
     Dosage: 3 MG/M2, CYCLIC
     Route: 042
  7. PEGFILGRASTIM [Concomitant]
     Active Substance: PEGFILGRASTIM
     Dosage: 6 MG, DAILY
     Route: 042
  8. ACICLOVIR [Concomitant]
     Active Substance: ACYCLOVIR
     Dosage: 400 MG, 3X/DAY
     Route: 048
  9. ONDANSETRON [Concomitant]
     Active Substance: ONDANSETRON
     Dosage: 8 MG, CYCLIC
     Route: 048
  10. AMPHO-MORONAL [Concomitant]
     Active Substance: AMPHOTERICIN B
     Dosage: 10 MG, CYCLIC
     Route: 048
  11. CIPROFLOXACIN. [Concomitant]
     Active Substance: CIPROFLOXACIN
     Dosage: 500 MG, CYCLIC
     Route: 048
  12. METHOTREXATE SODIUM. [Suspect]
     Active Substance: METHOTREXATE SODIUM
     Dosage: 1500 MG/M2, CYCLIC
     Route: 042
  13. ETOPOSID [Suspect]
     Active Substance: ETOPOSIDE
     Dosage: 250 MG/M2, CYCLIC
     Route: 042

REACTIONS (5)
  - Pyrexia [Unknown]
  - Dysphagia [Unknown]
  - Anaemia [Unknown]
  - Epistaxis [Unknown]
  - Inflammation [Unknown]
